FAERS Safety Report 11688826 (Version 1)
Quarter: 2015Q4

REPORT INFORMATION
  Report Type: Spontaneous
  Country: JP (occurrence: JP)
  Receive Date: 20151102
  Receipt Date: 20151102
  Transmission Date: 20160304
  Serious: Yes (Other)
  Sender: FDA-Public Use
  Company Number: JP-AMGEN-JPNSP2015108530

PATIENT
  Age: 72 Year
  Sex: Female
  Weight: 42 kg

DRUGS (17)
  1. GILOTRIF [Suspect]
     Active Substance: AFATINIB
     Indication: LUNG ADENOCARCINOMA
  2. LOPERAMIDE [Concomitant]
     Active Substance: LOPERAMIDE
     Indication: DIARRHOEA
     Dosage: 2 MG, AS NECESSARY
     Route: 048
     Dates: start: 20150828
  3. ADONA                              /00056903/ [Concomitant]
     Active Substance: CARBAZOCHROME SODIUM SULFONATE
     Dosage: 30 MG, TID
     Route: 048
     Dates: start: 20151009, end: 20151023
  4. LAC-B [Concomitant]
     Active Substance: BIFIDOBACTERIUM SPP.
     Indication: DIARRHOEA
     Dosage: 1 G, TID
     Route: 048
     Dates: start: 20140810
  5. REBAMIPIDE [Concomitant]
     Active Substance: REBAMIPIDE
     Dosage: 100 MG, TID
     Route: 048
     Dates: start: 20151009
  6. TRANSAMIN [Concomitant]
     Active Substance: TRANEXAMIC ACID
     Dosage: 500 MG, TID
     Route: 048
     Dates: start: 20151009, end: 20151023
  7. POLARAMINE [Concomitant]
     Active Substance: DEXCHLORPHENIRAMINE MALEATE
     Indication: PRURITUS
     Dosage: 2 MG, TID
     Route: 048
     Dates: start: 20150306
  8. FENELMIN [Concomitant]
     Indication: IRON DEFICIENCY ANAEMIA
     Dosage: 100 MG, BID
     Route: 048
     Dates: start: 20150605
  9. CEFDITOREN PIVOXIL. [Concomitant]
     Active Substance: CEFDITOREN PIVOXIL
     Dosage: 100 MG, TID
     Route: 048
     Dates: start: 20151009, end: 20151023
  10. RANMARK [Suspect]
     Active Substance: DENOSUMAB
     Indication: METASTASES TO BONE
     Dosage: 120 MG, Q4WK
     Route: 058
     Dates: start: 20120908
  11. ADOAIR [Concomitant]
     Active Substance: FLUTICASONE PROPIONATE\SALMETEROL XINAFOATE
     Indication: ASTHMA
     Dosage: 250 MUG, BID
     Route: 055
     Dates: start: 20081204
  12. FAMOTIDINE. [Concomitant]
     Active Substance: FAMOTIDINE
     Indication: GASTRITIS
     Dosage: 20 MG, BID
     Route: 048
     Dates: start: 20150926, end: 20151010
  13. GILOTRIF [Suspect]
     Active Substance: AFATINIB
     Indication: METASTASES TO BONE
     Dosage: 20 MG, QD
     Route: 048
     Dates: start: 20150113, end: 20151009
  14. METHADERM [Concomitant]
     Indication: PRURITUS
     Dosage: OPTIMAL DOSE , QD
     Route: 050
     Dates: start: 20121214
  15. LOXOPROFEN SODIUM [Concomitant]
     Active Substance: LOXOPROFEN SODIUM
     Dosage: 60 MG, TID
     Route: 048
     Dates: start: 20151009
  16. CALCIUM L-ASPARTATE [Concomitant]
     Indication: METASTASES TO BONE
     Dosage: 400 MG, TID
     Route: 048
     Dates: start: 20120908
  17. WARFARIN [Concomitant]
     Active Substance: WARFARIN
     Indication: DEEP VEIN THROMBOSIS
     Dosage: 2 MG, QD
     Route: 048
     Dates: start: 20150903

REACTIONS (2)
  - Rib fracture [Recovering/Resolving]
  - Haemothorax [Recovering/Resolving]

NARRATIVE: CASE EVENT DATE: 20151008
